FAERS Safety Report 15105799 (Version 3)
Quarter: 2018Q3

REPORT INFORMATION
  Report Type: Report from Study
  Country: JP (occurrence: JP)
  Receive Date: 20180704
  Receipt Date: 20180712
  Transmission Date: 20181010
  Serious: Yes (Life-Threatening, Hospitalization)
  Sender: FDA-Public Use
  Company Number: JP-TAIHO ONCOLOGY INC-JPTT180510

PATIENT
  Age: 69 Year
  Sex: Female
  Weight: 51 kg

DRUGS (2)
  1. AVASTIN [Suspect]
     Active Substance: BEVACIZUMAB
     Indication: COLORECTAL CANCER RECURRENT
     Route: 041
     Dates: start: 20171101
  2. LONSURF [Suspect]
     Active Substance: TIPIRACIL HYDROCHLORIDE\TRIFLURIDINE
     Indication: COLORECTAL CANCER RECURRENT
     Dosage: 50 MG X 2/DAY, ON DAYS 1?5 OF EACH 14?DAY CYCLE
     Route: 048
     Dates: start: 20171101

REACTIONS (4)
  - Laryngeal oedema [Recovered/Resolved]
  - Dehydration [Recovered/Resolved]
  - Pneumonitis [Recovered/Resolved]
  - Decreased appetite [Recovered/Resolved]

NARRATIVE: CASE EVENT DATE: 20180617
